FAERS Safety Report 9175229 (Version 1)
Quarter: 2013Q1

REPORT INFORMATION
  Report Type: Spontaneous
  Country: CO (occurrence: CO)
  Receive Date: 20130320
  Receipt Date: 20130320
  Transmission Date: 20140127
  Serious: Yes (Other)
  Sender: FDA-Public Use
  Company Number: CO-PFIZER INC-2013090400

PATIENT
  Age: 5 Year
  Sex: Female

DRUGS (3)
  1. GENOTROPIN [Suspect]
     Indication: TURNER^S SYNDROME
     Dosage: 0.6 MG, 1X/DAY
     Route: 058
     Dates: start: 2009
  2. ENALAPRIL [Concomitant]
     Indication: PROPHYLAXIS
     Dosage: 2.5 MG, WEEKLY
     Route: 048
     Dates: end: 2009
  3. ENALAPRIL [Concomitant]
     Dosage: 2.5 MG, WEEKLY
     Route: 048
     Dates: start: 201209

REACTIONS (3)
  - Congenital cystic kidney disease [Unknown]
  - Hypothyroidism [Recovering/Resolving]
  - Injection site pain [Not Recovered/Not Resolved]
